FAERS Safety Report 12244601 (Version 4)
Quarter: 2019Q2

REPORT INFORMATION
  Report Type: Report from Study
  Country: CA (occurrence: CA)
  Receive Date: 20160407
  Receipt Date: 20190508
  Transmission Date: 20190711
  Serious: Yes (Hospitalization, Other)
  Sender: FDA-Public Use
  Company Number: CA-ROCHE-1530059

PATIENT
  Age: 73 Year
  Sex: Female

DRUGS (5)
  1. ACTEMRA [Suspect]
     Active Substance: TOCILIZUMAB
     Dosage: START ON TREATMENT THROUGH RPAP
     Route: 058
     Dates: start: 201502
  2. ATACAND [Concomitant]
     Active Substance: CANDESARTAN CILEXETIL
  3. ACTEMRA [Suspect]
     Active Substance: TOCILIZUMAB
     Indication: RHEUMATOID ARTHRITIS
     Route: 058
  4. FOLIC ACID. [Concomitant]
     Active Substance: FOLIC ACID
  5. METHOTREXATE. [Concomitant]
     Active Substance: METHOTREXATE

REACTIONS (5)
  - Arthralgia [Unknown]
  - Appendicitis [Recovered/Resolved]
  - Arthropathy [Unknown]
  - Wound dehiscence [Not Recovered/Not Resolved]
  - Cholelithiasis [Not Recovered/Not Resolved]

NARRATIVE: CASE EVENT DATE: 2016
